FAERS Safety Report 19282396 (Version 2)
Quarter: 2021Q4

REPORT INFORMATION
  Report Type: Spontaneous
  Country: US (occurrence: US)
  Receive Date: 20210521
  Receipt Date: 20211111
  Transmission Date: 20220303
  Serious: Yes (Other)
  Sender: FDA-Public Use
  Company Number: US-TOPROL-2021000091

PATIENT
  Age: 72 Year
  Sex: Male
  Weight: 145 kg

DRUGS (13)
  1. METOPROLOL SUCCINATE [Suspect]
     Active Substance: METOPROLOL SUCCINATE
     Route: 048
  2. BYDUREON BCISE [Suspect]
     Active Substance: EXENATIDE
     Route: 058
  3. BYDUREON [Suspect]
     Active Substance: EXENATIDE
     Route: 058
  4. TRESIBA [Concomitant]
     Active Substance: INSULIN DEGLUDEC
     Dosage: 36 U.S.P. UNITS
     Route: 058
  5. LOSARTAN [Concomitant]
     Active Substance: LOSARTAN
     Route: 048
  6. LASIX [Concomitant]
     Active Substance: FUROSEMIDE
     Route: 048
  7. SPIRONOLACTONE [Concomitant]
     Active Substance: SPIRONOLACTONE
     Route: 048
  8. GLYBURIDE [Concomitant]
     Active Substance: GLYBURIDE
     Route: 048
  9. METFORMIN [Concomitant]
     Active Substance: METFORMIN HYDROCHLORIDE
     Route: 048
  10. CLONIDINE [Concomitant]
     Active Substance: CLONIDINE
     Route: 048
  11. Statin (generic unknown name) [Concomitant]
     Route: 048
  12. Multivitamin for Seniors [Concomitant]
     Dosage: UNKNOWN
     Route: 065
  13. CHLORPHENIRAMINE MALEATE [Concomitant]
     Active Substance: CHLORPHENIRAMINE MALEATE
     Dosage: 4 MG, AS REQUIRED
     Route: 048

REACTIONS (5)
  - Nephrolithiasis [Recovered/Resolved]
  - Cyst [Recovered/Resolved]
  - Renal colic [Unknown]
  - Blood urine [Unknown]
  - Product use issue [Unknown]
